FAERS Safety Report 16302599 (Version 3)
Quarter: 2023Q2

REPORT INFORMATION
  Report Type: Spontaneous
  Country: KR (occurrence: KR)
  Receive Date: 20190513
  Receipt Date: 20230607
  Transmission Date: 20230722
  Serious: Yes (Hospitalization, Other)
  Sender: FDA-Public Use
  Company Number: KR-BAYER-2019-089764

PATIENT
  Age: 49 Year
  Sex: Male

DRUGS (4)
  1. EYLEA [Suspect]
     Active Substance: AFLIBERCEPT
     Indication: Diabetic retinal oedema
     Dosage: UNK, SOLUTION FOR INJECTION, 40 MG/ML
  2. EYLEA [Suspect]
     Active Substance: AFLIBERCEPT
     Dosage: LAST DOSE PRIOR THE EVENT OF ENDOPHTHALMITIS, SOLUTION FOR INJECTION, 40 MG/ML
     Route: 031
     Dates: start: 20190430, end: 20190430
  3. EYLEA [Suspect]
     Active Substance: AFLIBERCEPT
     Dosage: LAST DOSE PRIOR THE EVENT OF ENDOPHTHALMITIS,  SOLUTION FOR INJECTION, 40 MG/ML
     Route: 031
     Dates: start: 20190430, end: 20190430
  4. UNSPECIFIED INGREDIENT [Concomitant]
     Active Substance: UNSPECIFIED INGREDIENT
     Indication: Medical procedure

REACTIONS (4)
  - Cystoid macular oedema [Recovered/Resolved]
  - Blindness unilateral [Unknown]
  - Endophthalmitis [Unknown]
  - Eye pain [Unknown]

NARRATIVE: CASE EVENT DATE: 20190301
